FAERS Safety Report 8183777-1 (Version None)
Quarter: 2012Q1

REPORT INFORMATION
  Report Type: 
  Country: None (occurrence: None)
  Receive Date: 20120305
  Receipt Date: 20120305
  Transmission Date: 20120608
  Serious: Yes (Hospitalization)
  Sender: FDA-Public Use
  Company Number: PHHO1995GB02364

PATIENT
  Sex: Female
  Weight: 64 kg

DRUGS (6)
  1. METOCLOPRAMIDE [Concomitant]
     Route: 048
     Dates: start: 19950807
  2. SUCRALFATE [Concomitant]
     Route: 048
     Dates: start: 19950729
  3. PIPERACILLIN AND TAZOBACTAM [Concomitant]
     Route: 042
     Dates: start: 19950730, end: 19950804
  4. NEORAL [Suspect]
     Route: 042
     Dates: start: 19950724
  5. AZATHIOPRINE [Suspect]
     Route: 048
     Dates: start: 19950724
  6. METRONIDAZOLE [Concomitant]
     Dosage: UNSPECIFIED
     Route: 042
     Dates: start: 19950802, end: 19950807

REACTIONS (1)
  - TRANSPLANT REJECTION [None]
